FAERS Safety Report 16593854 (Version 2)
Quarter: 2020Q2

REPORT INFORMATION
  Report Type: Spontaneous
  Country: CN (occurrence: CN)
  Receive Date: 20190718
  Receipt Date: 20200604
  Transmission Date: 20200713
  Serious: Yes (Other)
  Sender: FDA-Public Use
  Company Number: CN-009507513-1907CHN006328

PATIENT
  Age: 53 Year
  Sex: Male
  Weight: 74 kg

DRUGS (8)
  1. IMIPENEM AND CILASTATIN [Suspect]
     Active Substance: CILASTATIN SODIUM\IMIPENEM
     Indication: ANTI-INFECTIVE THERAPY
     Dosage: 1 GRAM, Q12H; 12:00 AND 24:00
     Dates: start: 20180220, end: 20180222
  2. CEFOPERAZONE SODIUM [Concomitant]
     Active Substance: CEFOPERAZONE SODIUM
     Indication: LUNG ABSCESS
     Dosage: UNK
     Route: 048
     Dates: start: 20180210, end: 20180217
  3. MOXIFLOXACIN. [Concomitant]
     Active Substance: MOXIFLOXACIN
     Indication: ANTI-INFECTIVE THERAPY
     Dosage: UNK
     Dates: start: 20180219
  4. CEFOPERAZONE SODIUM [Concomitant]
     Active Substance: CEFOPERAZONE SODIUM
     Indication: ANTI-INFECTIVE THERAPY
  5. IMIPENEM AND CILASTATIN [Suspect]
     Active Substance: CILASTATIN SODIUM\IMIPENEM
     Indication: LUNG ABSCESS
     Dosage: 1 GRAM, Q8H; 8:00, 16:00 AND 24:00
     Dates: start: 20180219, end: 20180220
  6. TAZOBACTAM SODIUM [Concomitant]
     Active Substance: TAZOBACTAM SODIUM
     Indication: ANTI-INFECTIVE THERAPY
  7. MOXIFLOXACIN. [Concomitant]
     Active Substance: MOXIFLOXACIN
     Indication: LUNG ABSCESS
     Dosage: UNK
     Route: 048
     Dates: start: 20180210, end: 20180217
  8. TAZOBACTAM SODIUM [Concomitant]
     Active Substance: TAZOBACTAM SODIUM
     Indication: LUNG ABSCESS
     Dosage: UNK
     Route: 048
     Dates: start: 20180210, end: 20180217

REACTIONS (1)
  - Toxic encephalopathy [Recovering/Resolving]

NARRATIVE: CASE EVENT DATE: 20180223
